FAERS Safety Report 11048498 (Version 1)
Quarter: 2015Q2

REPORT INFORMATION
  Report Type: Spontaneous
  Country: US (occurrence: US)
  Receive Date: 20150420
  Receipt Date: 20150420
  Transmission Date: 20150821
  Serious: Yes (Other)
  Sender: FDA-Public Use
  Company Number: US-ABBVIE-14P-163-1290897-00

PATIENT
  Age: 8 Year
  Sex: Female
  Weight: 25.4 kg

DRUGS (3)
  1. AMOXICILLIN. [Suspect]
     Active Substance: AMOXICILLIN
     Indication: EYE INFECTION
     Route: 065
     Dates: start: 20140914
  2. LUPRON DEPOT-PED [Suspect]
     Active Substance: LEUPROLIDE ACETATE
     Indication: PRECOCIOUS PUBERTY
     Route: 065
     Dates: start: 20140617
  3. OMNITROPE [Concomitant]
     Active Substance: SOMATROPIN
     Indication: BLOOD GROWTH HORMONE

REACTIONS (2)
  - Urticaria [Not Recovered/Not Resolved]
  - Eye infection [Recovered/Resolved]

NARRATIVE: CASE EVENT DATE: 20140914
